FAERS Safety Report 10042223 (Version 2)
Quarter: 2014Q1

REPORT INFORMATION
  Report Type: Spontaneous
  Country: JP (occurrence: JP)
  Receive Date: 20140327
  Receipt Date: 20140331
  Transmission Date: 20141002
  Serious: Yes (Hospitalization)
  Sender: FDA-Public Use
  Company Number: JP-GLAXOSMITHKLINE-B0978425A

PATIENT
  Age: 46 Year
  Sex: Female

DRUGS (10)
  1. LAMICTAL [Suspect]
     Indication: DEPRESSED MOOD
     Dosage: 25MG ALTERNATE DAYS
     Route: 048
     Dates: start: 20140131, end: 20140213
  2. LAMICTAL [Suspect]
     Indication: DEPRESSED MOOD
     Dosage: 25MG PER DAY
     Route: 048
     Dates: start: 20140214, end: 20140228
  3. LAMICTAL [Suspect]
     Indication: DEPRESSED MOOD
     Dosage: 50MG PER DAY
     Route: 048
     Dates: start: 20140301, end: 20140305
  4. PL [Suspect]
     Indication: NASOPHARYNGITIS
     Route: 048
     Dates: start: 20140224, end: 20140228
  5. RISPERDAL [Concomitant]
     Indication: ANXIETY DISORDER
     Route: 048
  6. DESYREL [Concomitant]
     Indication: INSOMNIA
     Dosage: 25MG PER DAY
     Route: 048
  7. LANDSEN [Concomitant]
     Indication: ANXIETY DISORDER
     Dosage: .5MG TWICE PER DAY
     Route: 048
  8. WYPAX [Concomitant]
     Indication: ANXIETY DISORDER
     Dosage: .5MG THREE TIMES PER DAY
     Route: 048
  9. TRANSAMIN [Concomitant]
     Indication: NASOPHARYNGITIS
     Route: 065
     Dates: start: 20140224
  10. LOZENGES [Concomitant]
     Indication: NASOPHARYNGITIS
     Route: 048
     Dates: start: 20140224

REACTIONS (4)
  - Rash [Unknown]
  - Generalised erythema [Unknown]
  - Drug eruption [Unknown]
  - Nasopharyngitis [Unknown]
